FAERS Safety Report 19559140 (Version 2)
Quarter: 2021Q4

REPORT INFORMATION
  Report Type: Report from Study
  Country: US (occurrence: US)
  Receive Date: 20210715
  Receipt Date: 20211109
  Transmission Date: 20220303
  Serious: No
  Sender: FDA-Public Use
  Company Number: US-KYOWAKIRIN-2021BKK012315

PATIENT

DRUGS (2)
  1. CRYSVITA [Suspect]
     Active Substance: BUROSUMAB-TWZA
     Indication: Hereditary hypophosphataemic rickets
     Dosage: 30 MG, EVERY 2 WEEKS
     Route: 058
     Dates: start: 20180510
  2. CRYSVITA [Suspect]
     Active Substance: BUROSUMAB-TWZA
     Dosage: 30 MG, EVERY 2 WEEKS
     Route: 058
     Dates: start: 20180719

REACTIONS (3)
  - Arthralgia [Unknown]
  - Condition aggravated [Unknown]
  - Rash [Unknown]
